FAERS Safety Report 21528144 (Version 1)
Quarter: 2022Q4

REPORT INFORMATION
  Report Type: Spontaneous
  Country: US (occurrence: US)
  Receive Date: 20221031
  Receipt Date: 20221031
  Transmission Date: 20230112
  Serious: No
  Sender: FDA-Public Use
  Company Number: US-BAYER-2022A139490

PATIENT
  Age: 63 Year
  Sex: Male

DRUGS (2)
  1. ASTEPRO [Suspect]
     Active Substance: AZELASTINE HYDROCHLORIDE
     Indication: Sinus disorder
     Dosage: 1-2 SPRAYS EACH NOSTRILS
  2. AFRIN [OXYMETAZOLINE] [Concomitant]
     Indication: Product used for unknown indication
     Route: 065

REACTIONS (4)
  - Therapeutic product ineffective [Unknown]
  - Somnolence [Unknown]
  - Nasal discomfort [Unknown]
  - Product after taste [Unknown]
